FAERS Safety Report 5368432-5 (Version None)
Quarter: 2007Q2

REPORT INFORMATION
  Report Type: 
  Country: None (occurrence: None)
  Receive Date: 20070621
  Receipt Date: 20070621
  Transmission Date: 20071010
  Serious: Yes (Hospitalization)
  Sender: FDA-Public Use
  Company Number: None

PATIENT
  Age: 74 Year
  Sex: Female
  Weight: 67.1324 kg

DRUGS (1)
  1. ZOLPIDEM TARTRATE [Suspect]
     Indication: SLEEP DISORDER
     Dosage: 1 TABLET AT BEDTIME PO
     Route: 048
     Dates: start: 20070611, end: 20070614

REACTIONS (8)
  - BLOOD URINE PRESENT [None]
  - DIZZINESS [None]
  - DRUG HYPERSENSITIVITY [None]
  - HALLUCINATION, OLFACTORY [None]
  - HOT FLUSH [None]
  - PARAESTHESIA [None]
  - POLLAKIURIA [None]
  - TINNITUS [None]
